FAERS Safety Report 7360816-9 (Version None)
Quarter: 2011Q1

REPORT INFORMATION
  Report Type: 
  Country: None (occurrence: None)
  Receive Date: 20110315
  Receipt Date: 20110315
  Transmission Date: 20110831
  Serious: Yes (Hospitalization)
  Sender: FDA-Public Use
  Company Number: None

PATIENT
  Age: 59 Year
  Sex: Female
  Weight: 86.1834 kg

DRUGS (2)
  1. CITALOPRAM HYDROBROMIDE [Suspect]
     Indication: DEPRESSION
     Dosage: 40MG ONCE PO
     Route: 048
     Dates: start: 20091015, end: 20091015
  2. CITALOPRAM HYDROBROMIDE [Suspect]
     Indication: ANXIETY
     Dosage: 40MG ONCE PO
     Route: 048
     Dates: start: 20091015, end: 20091015

REACTIONS (6)
  - PAIN [None]
  - FALL [None]
  - DISORIENTATION [None]
  - ECONOMIC PROBLEM [None]
  - PAIN IN EXTREMITY [None]
  - MOVEMENT DISORDER [None]
